FAERS Safety Report 9753207 (Version 1)
Quarter: 2013Q4

REPORT INFORMATION
  Report Type: Spontaneous
  Country: US (occurrence: US)
  Receive Date: 20131213
  Receipt Date: 20131213
  Transmission Date: 20140711
  Serious: No
  Sender: FDA-Public Use
  Company Number: US-GILEAD-2010-0027338

PATIENT
  Sex: Female

DRUGS (10)
  1. LETAIRIS [Suspect]
     Indication: PULMONARY ARTERIAL HYPERTENSION
     Route: 048
     Dates: start: 20091208
  2. REVATIO [Concomitant]
  3. LISINOPRIL [Concomitant]
  4. LIPITOR [Concomitant]
  5. ZANAFLEX [Concomitant]
  6. LASIX [Concomitant]
  7. CLONAZEPAM [Concomitant]
  8. TYLENOL [Concomitant]
  9. POT CL [Concomitant]
  10. HYDROCODONE-APAP [Concomitant]

REACTIONS (1)
  - Dyspnoea [Unknown]
